FAERS Safety Report 10798422 (Version 1)
Quarter: 2015Q1

REPORT INFORMATION
  Report Type: Spontaneous
  Country: US (occurrence: US)
  Receive Date: 20150216
  Receipt Date: 20150216
  Transmission Date: 20150721
  Serious: Yes (Other)
  Sender: FDA-Public Use
  Company Number: US-GLAXOSMITHKLINE-US2015GSK020578

PATIENT
  Age: 17 Year
  Sex: Female

DRUGS (1)
  1. SUMATRIPTAN SOLUTION FOR INJECTION [Suspect]
     Active Substance: SUMATRIPTAN
     Indication: PRODUCT USED FOR UNKNOWN INDICATION
     Dosage: 6 MG, SINGLE
     Dates: start: 20150125

REACTIONS (5)
  - Erythema [Unknown]
  - Syncope [Unknown]
  - Hyperhidrosis [Unknown]
  - Aphasia [Unknown]
  - Presyncope [Unknown]

NARRATIVE: CASE EVENT DATE: 20150125
